FAERS Safety Report 5306118-3 (Version None)
Quarter: 2007Q2

REPORT INFORMATION
  Report Type: 
  Country: None (occurrence: None)
  Receive Date: 20070424
  Receipt Date: 20070215
  Transmission Date: 20071010
  Serious: No
  Sender: FDA-Public Use
  Company Number: US-BRISTOL-MYERS SQUIBB COMPANY-13681648

PATIENT

DRUGS (1)
  1. CARBOPLATIN [Suspect]

REACTIONS (2)
  - FLUSHING [None]
  - HYPOTENSION [None]
